FAERS Safety Report 7568717-8 (Version None)
Quarter: 2011Q2

REPORT INFORMATION
  Report Type: 
  Country: None (occurrence: None)
  Receive Date: 20110623
  Receipt Date: 20110617
  Transmission Date: 20111010
  Serious: Yes (Other)
  Sender: FDA-Public Use
  Company Number: GB-MERCK-1106GBR00089

PATIENT
  Age: 73 Year
  Sex: Male
  Weight: 82 kg

DRUGS (8)
  1. JANUVIA [Suspect]
     Indication: DIABETES MELLITUS
     Route: 048
     Dates: start: 20101001, end: 20110113
  2. SIMVASTATIN [Concomitant]
     Route: 048
     Dates: start: 20080502
  3. ASPIRIN [Concomitant]
     Route: 065
     Dates: start: 20050101
  4. DILTIAZEM HYDROCHLORIDE [Concomitant]
     Route: 048
  5. REPAGLINIDE [Concomitant]
     Indication: DIABETES MELLITUS
     Route: 048
     Dates: start: 20100430
  6. LANSOPRAZOLE [Concomitant]
     Route: 065
     Dates: start: 20090116
  7. METFORMIN [Concomitant]
     Indication: DIABETES MELLITUS
     Route: 048
     Dates: start: 20050405
  8. RAMIPRIL [Concomitant]
     Route: 065
     Dates: start: 20080903

REACTIONS (2)
  - LIVER FUNCTION TEST ABNORMAL [None]
  - DIABETES MELLITUS INADEQUATE CONTROL [None]
